FAERS Safety Report 6194514-4 (Version None)
Quarter: 2009Q2

REPORT INFORMATION
  Report Type: 
  Country: None (occurrence: None)
  Receive Date: 20090519
  Receipt Date: 20090511
  Transmission Date: 20091009
  Serious: Yes (Other)
  Sender: FDA-Public Use
  Company Number: CA-ASTRAZENECA-2009UW12221

PATIENT

DRUGS (2)
  1. MARCAINE [Suspect]
     Indication: SHOULDER OPERATION
     Dosage: 0.5%
     Route: 014
     Dates: start: 20050420
  2. DONJOY PAIN PUMP [Suspect]
     Indication: SHOULDER OPERATION
     Route: 065
     Dates: start: 20050420

REACTIONS (1)
  - CHONDROLYSIS [None]
